FAERS Safety Report 11704541 (Version 1)
Quarter: 2015Q4

REPORT INFORMATION
  Report Type: Spontaneous
  Country: US (occurrence: None)
  Receive Date: 20151105
  Receipt Date: 20151105
  Transmission Date: 20160304
  Serious: Yes (Death)
  Sender: FDA-Public Use
  Company Number: None

PATIENT
  Sex: Female

DRUGS (1)
  1. RANITIDINE [Suspect]
     Active Substance: RANITIDINE\RANITIDINE HYDROCHLORIDE

REACTIONS (5)
  - Dehydration [None]
  - Blood isopropanol increased [None]
  - Pulmonary haemorrhage [None]
  - Pulmonary oedema [None]
  - Reaction to drug excipients [None]

NARRATIVE: CASE EVENT DATE: 201404
